FAERS Safety Report 6307604-X (Version None)
Quarter: 2009Q3

REPORT INFORMATION
  Report Type: 
  Country: None (occurrence: None)
  Receive Date: 20090813
  Receipt Date: 20090729
  Transmission Date: 20100115
  Serious: Yes (Other)
  Sender: FDA-Public Use
  Company Number: PHHY2009GB32138

PATIENT
  Sex: Female

DRUGS (5)
  1. TEGRETOL [Suspect]
     Indication: EPILEPSY
     Dosage: 200 MG DAILY
  2. BECONASE AQUEOUS [Concomitant]
     Dosage: 50MCG/DOSE 2BD 1 SPRAY
     Dates: start: 20000601
  3. OPTICROM [Concomitant]
     Dosage: 2 QDS 13.5ML(S)
     Dates: start: 20000601
  4. CLOTRIMAZOLE [Concomitant]
     Dosage: 1% BD 30GM
     Dates: start: 20000801
  5. GAVISCON [Concomitant]
     Dosage: 10 ML QDS 500 ML
     Dates: start: 20000801

REACTIONS (10)
  - ANTICONVULSANT DRUG LEVEL BELOW THERAPEUTIC [None]
  - BREAST DISCHARGE [None]
  - DRUG EXPOSURE DURING PREGNANCY [None]
  - EPILEPSY [None]
  - GLYCOSURIA [None]
  - HYPEREMESIS GRAVIDARUM [None]
  - MALAISE [None]
  - SEASONAL ALLERGY [None]
  - VAGINAL HAEMORRHAGE [None]
  - VAGINAL INFECTION [None]
